FAERS Safety Report 13749516 (Version 2)
Quarter: 2017Q3

REPORT INFORMATION
  Report Type: Spontaneous
  Country: FR (occurrence: FR)
  Receive Date: 20170713
  Receipt Date: 20170713
  Transmission Date: 20171127
  Serious: No
  Sender: FDA-Public Use
  Company Number: FR-009507513-1707FRA001453

PATIENT
  Age: 47 Year
  Sex: Male

DRUGS (1)
  1. LIPTRUZET [Suspect]
     Active Substance: ATORVASTATIN CALCIUM\EZETIMIBE
     Dosage: UNK, STRENGTH: 10/80 (UNITS NOT PROVIDED)
     Route: 048

REACTIONS (3)
  - Myalgia [Unknown]
  - Fatigue [Unknown]
  - Muscle enzyme increased [Unknown]
